FAERS Safety Report 6308832-X (Version None)
Quarter: 2009Q3

REPORT INFORMATION
  Report Type: 
  Country: None (occurrence: None)
  Receive Date: 20090813
  Receipt Date: 20081212
  Transmission Date: 20100115
  Serious: No
  Sender: FDA-Public Use
  Company Number: US-ALLERGAN-0811314US

PATIENT
  Age: 86 Year
  Sex: Female
  Weight: 63.492 kg

DRUGS (13)
  1. COMBIGAN [Suspect]
     Indication: INTRAOCULAR PRESSURE INCREASED
     Dosage: 1 GTT, BID (MORNING AND NIGHT)
     Route: 047
     Dates: start: 20080903
  2. COMBIGAN [Suspect]
     Indication: GLAUCOMA
     Dosage: 1 GTT, BID (MORNING AND NIGHT)
     Route: 047
     Dates: start: 20080915
  3. COMBIGAN [Suspect]
     Indication: OPEN ANGLE GLAUCOMA
     Dosage: 1 GTT, BID (MORNING AND NIGHT)
     Route: 047
     Dates: start: 20081003
  4. LISINOPRIL [Concomitant]
     Indication: BLOOD PRESSURE
     Dosage: 20 MG, 1 TAB, QAM
     Route: 048
  5. CLONIDINE [Concomitant]
     Indication: BLOOD PRESSURE
     Dosage: 1/2 TAB
     Route: 048
     Dates: end: 20081009
  6. CLONIDINE [Concomitant]
     Dosage: 1/2 TAB
     Route: 048
     Dates: end: 20081009
  7. THYROID TAB [Concomitant]
     Indication: THYROID DISORDER
     Dosage: 1 G TABLET, QD (GENERIC) ^FOR YEARS^
  8. THYROID TAB [Concomitant]
  9. HYDROCHLOROTHIAZIDE [Concomitant]
     Indication: OEDEMA PERIPHERAL
     Dosage: 12.5 MG, QD (HCTZ GENERIC)
  10. ASPIRIN [Concomitant]
     Indication: CEREBROVASCULAR ACCIDENT PROPHYLAXIS
     Dosage: 81 MG, QD, 1 TAB FOR A LONG TIME
  11. ASPIRIN [Concomitant]
     Indication: CARDIOVASCULAR EVENT PROPHYLAXIS
  12. METAMUCIL [Concomitant]
     Dosage: OTC, QD
  13. FOLIC ACID [Concomitant]
     Dosage: OTC, QD

REACTIONS (11)
  - ASTHENIA [None]
  - BACK PAIN [None]
  - DIZZINESS [None]
  - DRY MOUTH [None]
  - ERYTHEMA [None]
  - EYE IRRITATION [None]
  - EYE PAIN [None]
  - FOREIGN BODY SENSATION IN EYES [None]
  - INTRAOCULAR PRESSURE INCREASED [None]
  - SENSORY DISTURBANCE [None]
  - SOMNOLENCE [None]
